FAERS Safety Report 5846248-0 (Version None)
Quarter: 2008Q3

REPORT INFORMATION
  Report Type: 
  Country: None (occurrence: None)
  Receive Date: 20080813
  Receipt Date: 20080806
  Transmission Date: 20090109
  Serious: Yes (Hospitalization)
  Sender: FDA-Public Use
  Company Number: 97-01-0551

PATIENT
  Age: 75 Year
  Sex: Male

DRUGS (4)
  1. INTRON A [Suspect]
     Indication: MULTIPLE MYELOMA
     Dosage: 3 MIU; TIW; SC
     Route: 058
     Dates: start: 19911118, end: 19961122
  2. AVLOCARDYL [Concomitant]
  3. FLUVOXAMINE MALEATE [Concomitant]
  4. EUPRESSYL [Concomitant]

REACTIONS (11)
  - CEREBRAL ATROPHY [None]
  - CEREBROVASCULAR DISORDER [None]
  - DELIRIUM TREMENS [None]
  - DEMENTIA [None]
  - GAIT DISTURBANCE [None]
  - HIV INFECTION [None]
  - HYPERTENSION [None]
  - MEMORY IMPAIRMENT [None]
  - MULTIPLE FRACTURES [None]
  - OSTEOPOROSIS [None]
  - SYPHILIS [None]
